FAERS Safety Report 6332680-8 (Version None)
Quarter: 2009Q3

REPORT INFORMATION
  Report Type: 
  Country: None (occurrence: None)
  Receive Date: 20090828
  Receipt Date: 20090818
  Transmission Date: 20100115
  Serious: Yes (Other)
  Sender: FDA-Public Use
  Company Number: US-ABBOTT-09P-163-0592258-00

PATIENT
  Sex: Male

DRUGS (13)
  1. RITONAVIR SOFT GELATIN CAPSULES [Suspect]
     Indication: HEPATITIS C VIRUS TEST
     Route: 048
     Dates: start: 20090501, end: 20090702
  2. PEG-INTRON [Suspect]
     Indication: HEPATITIS C VIRUS TEST
     Route: 058
     Dates: start: 20090501, end: 20090702
  3. SCH 900518 (S-P) [Suspect]
     Indication: HEPATITIS C VIRUS TEST
     Route: 048
     Dates: start: 20090501, end: 20090702
  4. RIBAVIRIN [Suspect]
     Indication: HEPATITIS C VIRUS TEST
     Route: 048
     Dates: start: 20090501, end: 20090702
  5. VICODIN [Concomitant]
     Indication: DRUG USE FOR UNKNOWN INDICATION
     Dates: start: 20080101
  6. LISINOPRIL [Concomitant]
     Indication: DRUG USE FOR UNKNOWN INDICATION
     Dates: start: 20080101
  7. PRISTIQ [Concomitant]
     Indication: DRUG USE FOR UNKNOWN INDICATION
     Dates: start: 20090615
  8. ZOFRAN [Concomitant]
     Indication: DRUG USE FOR UNKNOWN INDICATION
     Dates: start: 20090612
  9. PHENERGAN [Concomitant]
     Indication: DRUG USE FOR UNKNOWN INDICATION
     Dates: start: 20090522, end: 20090611
  10. IBUPROFEN [Concomitant]
     Indication: DRUG USE FOR UNKNOWN INDICATION
     Dates: start: 20090501
  11. TRAMADOL HCL [Concomitant]
     Indication: DRUG USE FOR UNKNOWN INDICATION
     Dates: start: 20090515
  12. FLEXERIL [Concomitant]
     Indication: DRUG USE FOR UNKNOWN INDICATION
     Dates: start: 20090515
  13. LEXAPRO [Concomitant]
     Indication: DRUG USE FOR UNKNOWN INDICATION
     Dates: start: 20090612, end: 20090614

REACTIONS (2)
  - HOMICIDAL IDEATION [None]
  - HOMICIDE [None]
